FAERS Safety Report 5829022-0 (Version None)
Quarter: 2008Q3

REPORT INFORMATION
  Report Type: 
  Country: None (occurrence: None)
  Receive Date: 20080731
  Receipt Date: 20080728
  Transmission Date: 20090109
  Serious: Yes (Other)
  Sender: FDA-Public Use
  Company Number: PHBS2008US05223

PATIENT
  Age: 8 Year
  Sex: Female

DRUGS (4)
  1. OXCARBAZEPINE [Suspect]
     Indication: CONVULSION
  2. ACETYLSALICYLIC ACID SRT [Concomitant]
     Dosage: LOW DOSE
  3. TOPIRAMATE [Concomitant]
  4. DORZOLAMIDE HYDROCHLORIDE W/TIMOLOL MALEATE [Concomitant]
     Indication: GLAUCOMA

REACTIONS (11)
  - ALOPECIA [None]
  - DRY SKIN [None]
  - EPILEPSY [None]
  - FATIGUE [None]
  - HAIR TEXTURE ABNORMAL [None]
  - HEADACHE [None]
  - HYPOTHYROIDISM [None]
  - OVERWEIGHT [None]
  - TEMPERATURE INTOLERANCE [None]
  - THYROXINE DECREASED [None]
  - THYROXINE FREE DECREASED [None]
